FAERS Safety Report 8304642-2 (Version None)
Quarter: 2012Q2

REPORT INFORMATION
  Report Type: 
  Country: None (occurrence: None)
  Receive Date: 20120423
  Receipt Date: 20120412
  Transmission Date: 20120825
  Serious: Yes (Hospitalization)
  Sender: FDA-Public Use
  Company Number: CA-ROCHE-1009324

PATIENT
  Sex: Female

DRUGS (6)
  1. XOLAIR [Suspect]
     Indication: RHINITIS
     Route: 058
     Dates: start: 20110609
  2. NEXIUM [Concomitant]
  3. XOLAIR [Suspect]
     Indication: ASTHMA
     Route: 058
     Dates: start: 20110414
  4. VENTOLIN [Concomitant]
  5. SYMBICORT [Concomitant]
  6. SINGULAIR [Concomitant]

REACTIONS (6)
  - DYSPNOEA [None]
  - THERAPEUTIC RESPONSE DECREASED [None]
  - CHEST DISCOMFORT [None]
  - LOWER RESPIRATORY TRACT INFECTION [None]
  - SINUSITIS [None]
  - CHEST PAIN [None]
